FAERS Safety Report 5001753-4 (Version None)
Quarter: 2006Q2

REPORT INFORMATION
  Report Type: 
  Country: None (occurrence: None)
  Receive Date: 20060512
  Receipt Date: 20060512
  Transmission Date: 20061013
  Serious: Yes (Other)
  Sender: FDA-Public Use
  Company Number: None

PATIENT
  Age: 51 Year
  Sex: Female
  Weight: 95 kg

DRUGS (3)
  1. SYMLIN [Suspect]
     Indication: DIABETES MELLITUS INSULIN-DEPENDENT
     Dosage: 0.1ML (60MCG) SQ TID
     Route: 058
     Dates: start: 20060402, end: 20060404
  2. NOVOLOG MIX 70/30 [Concomitant]
  3. GLUCOPHAGE [Concomitant]

REACTIONS (5)
  - FALL [None]
  - LACERATION [None]
  - MOUTH INJURY [None]
  - NAUSEA [None]
  - VOMITING [None]
